FAERS Safety Report 6051982-6 (Version None)
Quarter: 2009Q1

REPORT INFORMATION
  Report Type: 
  Country: None (occurrence: None)
  Receive Date: 20090126
  Receipt Date: 20090114
  Transmission Date: 20090719
  Serious: Yes (Other)
  Sender: FDA-Public Use
  Company Number: FR-SANOFI-SYNTHELABO-A01200815395

PATIENT
  Sex: Male
  Weight: 63 kg

DRUGS (6)
  1. KARDEGIC [Suspect]
     Indication: MYOCARDIAL INFARCTION
     Dosage: UNK
     Route: 065
  2. PLAVIX [Suspect]
     Indication: MYOCARDIAL INFARCTION
     Route: 048
  3. CARDENSIEL [Concomitant]
     Indication: HYPERTENSION
     Dosage: UNK
     Route: 065
  4. SIMVASTATIN [Concomitant]
     Indication: DYSLIPIDAEMIA
     Dosage: UNK
     Route: 065
  5. NOVOTILDIEM SR [Concomitant]
     Indication: CORONARY ARTERY DISEASE
     Dosage: UNK
     Route: 065
  6. PREVISCAN [Suspect]
     Indication: MYOCARDIAL INFARCTION
     Dosage: UNK
     Route: 065

REACTIONS (3)
  - GASTROINTESTINAL HAEMORRHAGE [None]
  - PERIPHERAL ISCHAEMIA [None]
  - VASCULAR STENOSIS [None]
